FAERS Safety Report 15185447 (Version 1)
Quarter: 2018Q3

REPORT INFORMATION
  Report Type: Spontaneous
  Country: TR (occurrence: TR)
  Receive Date: 20180723
  Receipt Date: 20180723
  Transmission Date: 20181010
  Serious: Yes (Hospitalization)
  Sender: FDA-Public Use
  Company Number: TR-VALIDUS PHARMACEUTICALS LLC-TR-2018VAL000859

PATIENT
  Age: 63 Year
  Sex: Male

DRUGS (2)
  1. CARBAMAZEPINE. [Suspect]
     Active Substance: CARBAMAZEPINE
     Indication: EPILEPSY
     Dosage: 400 MG, QD
  2. CARBAMAZEPINE. [Suspect]
     Active Substance: CARBAMAZEPINE
     Dosage: 800 MG, QD

REACTIONS (1)
  - Generalised tonic-clonic seizure [Recovered/Resolved]
